FAERS Safety Report 6335775-8 (Version None)
Quarter: 2009Q4

REPORT INFORMATION
  Report Type: 
  Country: None (occurrence: None)
  Receive Date: 20090828
  Receipt Date: 20090813
  Transmission Date: 20100525
  Serious: Yes (Hospitalization)
  Sender: FDA-Public Use
  Company Number: 8040938

PATIENT
  Sex: Male
  Weight: 27.3 kg

DRUGS (4)
  1. KEPPRA [Suspect]
     Dosage: 2250 MG /D TRP
     Route: 064
     Dates: start: 20070601, end: 20081125
  2. LEVETIRACETAM [Suspect]
     Dosage: 2250 MG  2/D TRM
     Dates: start: 20081126
  3. VITAMIN TAB [Concomitant]
  4. LEXAPRO [Concomitant]

REACTIONS (6)
  - CONSTIPATION [None]
  - DEHYDRATION [None]
  - DRUG EXPOSURE VIA BREAST MILK [None]
  - JAUNDICE NEONATAL [None]
  - MATERNAL DRUGS AFFECTING FOETUS [None]
  - PREMATURE BABY [None]
